FAERS Safety Report 20803939 (Version 1)
Quarter: 2022Q2

REPORT INFORMATION
  Report Type: Report from Study
  Country: DK (occurrence: DK)
  Receive Date: 20220509
  Receipt Date: 20220509
  Transmission Date: 20220720
  Serious: Yes (Other)
  Sender: FDA-Public Use
  Company Number: DK-GLAXOSMITHKLINE-DK2021GSK234698

PATIENT
  Age: 57 Year
  Sex: Male

DRUGS (5)
  1. TENOFOVIR DISOPROXIL FUMARATE [Suspect]
     Active Substance: TENOFOVIR DISOPROXIL FUMARATE
     Indication: Chronic hepatitis B
     Dosage: 245 MG, QD
     Dates: start: 2004, end: 2014
  2. ENTECAVIR [Suspect]
     Active Substance: ENTECAVIR
     Indication: Chronic hepatitis B
     Dosage: 0.5 MG, QD
     Dates: start: 2014, end: 201810
  3. ENTECAVIR [Suspect]
     Active Substance: ENTECAVIR
     Dosage: 0.5 MG EVERY SECOND DAY
     Dates: start: 201810, end: 2019
  4. LAMIVUDINE [Suspect]
     Active Substance: LAMIVUDINE
     Indication: Hepatitis B
     Dosage: 150 MG, BID
     Dates: start: 1996, end: 2004
  5. TENOFOVIR ALAFENAMIDE [Suspect]
     Active Substance: TENOFOVIR ALAFENAMIDE
     Indication: Chronic hepatitis B
     Dosage: UNK
     Dates: start: 2019

REACTIONS (5)
  - HIV associated nephropathy [Unknown]
  - Pathogen resistance [Unknown]
  - Viral mutation identified [Not Recovered/Not Resolved]
  - Drug resistance [Unknown]
  - Drug ineffective [Unknown]
